FAERS Safety Report 10727220 (Version 2)
Quarter: 2015Q1

REPORT INFORMATION
  Report Type: Spontaneous
  Country: FR (occurrence: FR)
  Receive Date: 20150121
  Receipt Date: 20150227
  Transmission Date: 20150721
  Serious: Yes (Hospitalization)
  Sender: FDA-Public Use
  Company Number: FR-009507513-1501FRA005697

PATIENT
  Age: 56 Year
  Sex: Male

DRUGS (35)
  1. CYTARABINE. [Suspect]
     Active Substance: CYTARABINE
     Dosage: 40 MG, ONCE
     Route: 037
     Dates: start: 20141123, end: 20141123
  2. ZYVOXID [Suspect]
     Active Substance: LINEZOLID
     Dosage: 600 MG, BID
     Route: 048
     Dates: start: 20141110, end: 20141124
  3. TIENAM IV 250MG/250MG, POUDRE POUR PERFUSION [Suspect]
     Active Substance: CILASTATIN SODIUM\IMIPENEM
     Dosage: TOTAL DAILY DOSE: 3G; FREQUENCY: TID
     Route: 042
     Dates: start: 20141126, end: 201412
  4. POLARAMINE [Suspect]
     Active Substance: DEXCHLORPHENIRAMINE MALEATE
     Dosage: 1 DF, QD
     Route: 042
     Dates: start: 20141121, end: 201412
  5. CYTARABINE. [Suspect]
     Active Substance: CYTARABINE
     Dosage: 40 MG, ONCE
     Route: 037
     Dates: start: 20141121, end: 20141121
  6. CYTARABINE. [Suspect]
     Active Substance: CYTARABINE
     Dosage: 40 MG, ONCE
     Route: 037
     Dates: start: 20141126, end: 20141126
  7. MEPREDNISONE [Concomitant]
     Active Substance: MEPREDNISONE
     Dosage: 40 MG, ONCE
     Route: 037
     Dates: start: 20141121, end: 20141121
  8. VANCOMYCIN [Suspect]
     Active Substance: VANCOMYCIN
     Dosage: 2500 MG, QD
     Route: 042
     Dates: start: 20141124, end: 20141130
  9. ZOPHREN (ONDANSETRON) [Suspect]
     Active Substance: ONDANSETRON
     Dosage: 1 DF, QD
     Route: 042
     Dates: start: 20141105, end: 201412
  10. TRANXENE T-TAB [Concomitant]
     Active Substance: CLORAZEPATE DIPOTASSIUM
     Dosage: 1 DF, QD
     Route: 042
     Dates: start: 20141126
  11. ACUPAN [Concomitant]
     Active Substance: NEFOPAM HYDROCHLORIDE
     Dosage: TOTAL DAILY DOSE: 60 MG; FREQUENCY: TID
     Route: 048
     Dates: start: 20141121
  12. MEPREDNISONE [Concomitant]
     Active Substance: MEPREDNISONE
     Dosage: 40 MG, ONCE
     Route: 037
     Dates: start: 20141209, end: 20141209
  13. CERUBIDINE [Suspect]
     Active Substance: DAUNORUBICIN HYDROCHLORIDE
     Dosage: 120 MG, QD
     Dates: start: 20141107, end: 20141108
  14. TAZOCILLINE [Suspect]
     Active Substance: PIPERACILLIN SODIUM\TAZOBACTAM SODIUM
     Dosage: TOTAL DAILY DOSE: 16 G; FREQUENCY: 4 TIMES DAILY
     Route: 048
     Dates: start: 20141106, end: 20141126
  15. TOPALGIC (SUPROFEN) [Suspect]
     Active Substance: SUPROFEN
     Dosage: TOTAL DAILY DOSE: 200 MG; FREQUENCY: QID
     Route: 048
     Dates: start: 201411, end: 201412
  16. MITOXANTRONE HYDROCHLORIDE. [Concomitant]
     Active Substance: MITOXANTRONE HYDROCHLORIDE
     Indication: CHEMOTHERAPY
     Dosage: 24MG(DAY 1, DAY 2)
  17. CERUBIDINE [Suspect]
     Active Substance: DAUNORUBICIN HYDROCHLORIDE
     Dosage: 60 MG, QD
     Route: 042
     Dates: start: 20141105, end: 20141106
  18. ARACYTINE [Suspect]
     Active Substance: CYTARABINE
     Dosage: 40 MG, ONCE
     Route: 037
  19. AMBISOME [Suspect]
     Active Substance: AMPHOTERICIN B
     Dosage: 270 MG, QD
     Route: 042
     Dates: start: 20141121, end: 201412
  20. PRIMPERAN [Concomitant]
     Active Substance: METOCLOPRAMIDE HYDROCHLORIDE
     Dosage: 30 MG, QD
     Route: 042
     Dates: start: 20141121
  21. MEPREDNISONE [Concomitant]
     Active Substance: MEPREDNISONE
     Dosage: 40 MG, ONCE
     Route: 037
     Dates: start: 20141126, end: 20141126
  22. FLAGYL [Suspect]
     Active Substance: METRONIDAZOLE\METRONIDAZOLE HYDROCHLORIDE
     Dosage: 500 MG, TID
     Route: 048
     Dates: start: 20141125, end: 201412
  23. MEPREDNISONE [Concomitant]
     Active Substance: MEPREDNISONE
     Dosage: 40 MG, ONCE
     Route: 037
     Dates: start: 20141123, end: 20141123
  24. TASIGNA [Suspect]
     Active Substance: NILOTINIB
     Indication: CHRONIC MYELOID LEUKAEMIA
     Dosage: 2 TABLETS, TWICE DAILY
     Route: 048
     Dates: start: 201404, end: 20141030
  25. CYTARABINE. [Suspect]
     Active Substance: CYTARABINE
     Indication: CHEMOTHERAPY
     Dosage: 400 MG, QD
     Route: 042
     Dates: start: 20141105, end: 20141111
  26. CYTARABINE. [Suspect]
     Active Substance: CYTARABINE
     Dosage: 40 MG, ONCE
     Route: 037
     Dates: start: 20141209, end: 20141209
  27. CYTARABINE. [Suspect]
     Active Substance: CYTARABINE
     Dosage: 2000 MG, TWICE DAILY
     Route: 042
     Dates: start: 20141212, end: 20141216
  28. METHOTREXATE [Suspect]
     Active Substance: METHOTREXATE
     Dosage: 15 MG, ONCE
     Route: 037
     Dates: start: 20141209, end: 20141209
  29. EUPANTOL [Suspect]
     Active Substance: PANTOPRAZOLE SODIUM
     Dosage: 40 MG, QD
     Route: 042
     Dates: start: 20141127, end: 20141207
  30. METHOTREXATE [Suspect]
     Active Substance: METHOTREXATE
     Dosage: 15 MG, ONCE
     Route: 037
     Dates: start: 20141121, end: 20141121
  31. METHOTREXATE [Suspect]
     Active Substance: METHOTREXATE
     Dosage: 15 MG, ONCE
     Route: 037
     Dates: start: 20141123, end: 20141123
  32. METHOTREXATE [Suspect]
     Active Substance: METHOTREXATE
     Dosage: 15 MG, ONCE
     Route: 037
     Dates: start: 20141126, end: 20141126
  33. METHYLPREDNISOLONE SODIUM SUCCINATE. [Suspect]
     Active Substance: METHYLPREDNISOLONE SODIUM SUCCINATE
     Dosage: 40 MG, ONCE
     Route: 037
  34. ACYCLOVIR. [Suspect]
     Active Substance: ACYCLOVIR
     Dosage: TOTAL DAILY DOSE: 750 MG, FREQUENCY: TID
     Route: 042
     Dates: start: 20141126, end: 20141207
  35. SPASFON [Concomitant]
     Active Substance: PHLOROGLUCINOL
     Dosage: 3 DF, QD
     Route: 042
     Dates: start: 20141126

REACTIONS (1)
  - Venous thrombosis limb [Recovering/Resolving]

NARRATIVE: CASE EVENT DATE: 20141201
